FAERS Safety Report 17086929 (Version 9)
Quarter: 2022Q2

REPORT INFORMATION
  Report Type: Report from Study
  Country: US (occurrence: US)
  Receive Date: 20191128
  Receipt Date: 20220622
  Transmission Date: 20220721
  Serious: Yes (Other)
  Sender: FDA-Public Use
  Company Number: None

PATIENT
  Sex: Male

DRUGS (1)
  1. COSENTYX [Suspect]
     Active Substance: SECUKINUMAB
     Indication: Product used for unknown indication
     Dosage: UNK
     Route: 065

REACTIONS (8)
  - Hepatic cirrhosis [Unknown]
  - Autoimmune disorder [Unknown]
  - Influenza [Unknown]
  - Fatigue [Unknown]
  - Skin mass [Unknown]
  - Decreased immune responsiveness [Unknown]
  - Psoriasis [Unknown]
  - Immune system disorder [Unknown]
